FAERS Safety Report 14993994 (Version 1)
Quarter: 2018Q2

REPORT INFORMATION
  Report Type: Spontaneous
  Country: DE (occurrence: DE)
  Receive Date: 20180611
  Receipt Date: 20180611
  Transmission Date: 20180711
  Serious: Yes (Hospitalization)
  Sender: FDA-Public Use
  Company Number: DE-TEVA-2018-DE-905071

PATIENT
  Age: 70 Year
  Sex: Female
  Weight: 86 kg

DRUGS (10)
  1. ALLOPURINOL. [Concomitant]
     Active Substance: ALLOPURINOL
     Dosage: 300 MG, 0.5-0-0-0, TABLETTEN
     Route: 048
  2. METOPROLOL. [Concomitant]
     Active Substance: METOPROLOL
     Dosage: 95 MG, 0.5-0-0.5-0, TABLETTEN
     Route: 048
  3. PREDNISOLONE. [Suspect]
     Active Substance: PREDNISOLONE
     Dosage: 2 MG, 1-0-1-0, TABLETTEN
     Route: 048
  4. SEROQUEL [Concomitant]
     Active Substance: QUETIAPINE FUMARATE
     Dosage: 300 MG, 0-0-1-0, TABLETTEN
     Route: 048
  5. FUROSEMID [Concomitant]
     Active Substance: FUROSEMIDE
     Dosage: 40 MG, 1-0-0-0, TABLETTEN
     Route: 048
  6. CALCITRIOL. [Concomitant]
     Active Substance: CALCITRIOL
     Dosage: 0.25 MG, 1-0-0-0, TABLETTEN
     Route: 048
  7. TAVOR [Concomitant]
     Dosage: 1 MG, 0-0-1-0, TABLETTEN
     Route: 048
  8. PANTOZOL [Concomitant]
     Active Substance: PANTOPRAZOLE SODIUM
     Dosage: 40 MG, 1-0-0-0, TABLETTEN
     Route: 048
  9. L-THYROXIN 125 [Concomitant]
     Dosage: 125 MICROGRAM, 1-0-0-0, TABLETTEN
     Route: 048
  10. JANUVIA [Concomitant]
     Active Substance: SITAGLIPTIN PHOSPHATE
     Dosage: 50 MG, 1-0-1-0, TABLETTEN
     Route: 048

REACTIONS (4)
  - Pyrexia [Unknown]
  - General physical health deterioration [Unknown]
  - Pollakiuria [Unknown]
  - Dysuria [Unknown]
